FAERS Safety Report 23168263 (Version 1)
Quarter: 2023Q4

REPORT INFORMATION
  Report Type: Spontaneous
  Country: CN (occurrence: CN)
  Receive Date: 20231109
  Receipt Date: 20231109
  Transmission Date: 20240110
  Serious: Yes (Hospitalization)
  Sender: FDA-Public Use
  Company Number: CN-STRIDES ARCOLAB LIMITED-2023SP016653

PATIENT
  Age: 36 Year
  Sex: Male

DRUGS (7)
  1. METHOTREXATE [Suspect]
     Active Substance: METHOTREXATE
     Indication: Osteosarcoma
     Dosage: UNK, (MAP REGIMEN)
     Route: 065
  2. DOXORUBICIN [Suspect]
     Active Substance: DOXORUBICIN
     Indication: Osteosarcoma
     Dosage: UNK, (MAP REGIMEN)
     Route: 065
  3. CISPLATIN [Suspect]
     Active Substance: CISPLATIN
     Indication: Osteosarcoma
     Dosage: UNK, (MAP REGIMEN)
     Route: 065
  4. CISPLATIN [Suspect]
     Active Substance: CISPLATIN
     Dosage: 200 MILLIGRAM, CYCLICAL, 14 CYCLES OF TREATMENT
     Route: 065
  5. IFOSFAMIDE [Suspect]
     Active Substance: IFOSFAMIDE
     Indication: Osteosarcoma
     Dosage: 108 GRAM, CYCLICAL, 14 CYCLES OF TREATMENT
     Route: 065
  6. PACLITAXEL [Suspect]
     Active Substance: PACLITAXEL
     Indication: Osteosarcoma
     Dosage: 1400 MILLIGRAM, CYCLICAL, 14 CYCLES OF TREATMENT
     Route: 065
  7. PIRARUBICIN HYDROCHLORIDE [Suspect]
     Active Substance: PIRARUBICIN HYDROCHLORIDE
     Indication: Osteosarcoma
     Dosage: 1031 MILLIGRAM, CYCLICAL, 14 CYCLES OF TREATMENT
     Route: 065

REACTIONS (1)
  - Cardiac failure [Unknown]
